FAERS Safety Report 5618765-X (Version None)
Quarter: 2008Q1

REPORT INFORMATION
  Report Type: 
  Country: None (occurrence: None)
  Receive Date: 20080207
  Receipt Date: 20080128
  Transmission Date: 20080703
  Serious: Yes (Other)
  Sender: FDA-Public Use
  Company Number: FR-PFIZER INC-2007086405

PATIENT
  Sex: Female
  Weight: 65 kg

DRUGS (7)
  1. LYRICA [Suspect]
     Indication: NEURALGIA
     Route: 048
     Dates: start: 20070301, end: 20070426
  2. INDAPAMIDE [Concomitant]
     Indication: HYPERTENSION
     Route: 048
  3. COVERSYL [Concomitant]
     Indication: HYPERTENSION
     Route: 048
  4. CACIT [Concomitant]
     Indication: OSTEOPOROSIS
     Route: 048
  5. VASTEN [Concomitant]
     Indication: HYPERCHOLESTEROLAEMIA
  6. TEMESTA [Concomitant]
     Indication: INSOMNIA
  7. PARACETAMOL [Concomitant]
     Indication: OSTEOARTHRITIS

REACTIONS (2)
  - HALLUCINATION, VISUAL [None]
  - TRANSIENT ISCHAEMIC ATTACK [None]
